FAERS Safety Report 19641054 (Version 1)
Quarter: 2021Q3

REPORT INFORMATION
  Report Type: Spontaneous
  Country: IT (occurrence: IT)
  Receive Date: 20210730
  Receipt Date: 20210730
  Transmission Date: 20211014
  Serious: Yes (Hospitalization)
  Sender: FDA-Public Use
  Company Number: IT-SA-2021SA248954

PATIENT
  Age: 12 Year
  Sex: Male

DRUGS (1)
  1. CLEXANE [Suspect]
     Active Substance: ENOXAPARIN SODIUM
     Indication: THROMBOSIS PROPHYLAXIS
     Dosage: 200 KIU, QD
     Route: 058
     Dates: start: 20210424, end: 20210425

REACTIONS (1)
  - Eye oedema [Recovering/Resolving]

NARRATIVE: CASE EVENT DATE: 20210425
